FAERS Safety Report 12190498 (Version 1)
Quarter: 2016Q1

REPORT INFORMATION
  Report Type: Spontaneous
  Country: PK (occurrence: PK)
  Receive Date: 20160318
  Receipt Date: 20160318
  Transmission Date: 20160526
  Serious: Yes (Other)
  Sender: FDA-Public Use
  Company Number: PK-ROCHE-1728594

PATIENT
  Age: 50 Year
  Sex: Female
  Weight: 60.06 kg

DRUGS (1)
  1. XOLAIR [Suspect]
     Active Substance: OMALIZUMAB
     Indication: INTERSTITIAL LUNG DISEASE
     Route: 065

REACTIONS (3)
  - Off label use [Unknown]
  - Interstitial lung disease [Unknown]
  - Blood immunoglobulin E increased [Unknown]
